FAERS Safety Report 5789059-7 (Version None)
Quarter: 2008Q2

REPORT INFORMATION
  Report Type: 
  Country: None (occurrence: None)
  Receive Date: 20080626
  Receipt Date: 20080623
  Transmission Date: 20081010
  Serious: Yes (Other)
  Sender: FDA-Public Use
  Company Number: B0526535A

PATIENT
  Age: 38 Year
  Sex: Male

DRUGS (2)
  1. DIAMOX SRC [Suspect]
     Indication: GLAUCOMA
     Dosage: 250MG FOUR TIMES PER DAY
     Route: 048
     Dates: start: 20080422, end: 20080427
  2. VALTREX [Suspect]
     Indication: DRUG USE FOR UNKNOWN INDICATION
     Route: 065

REACTIONS (6)
  - AMNESIA [None]
  - ANOREXIA [None]
  - DREAMY STATE [None]
  - DRUG INTERACTION [None]
  - FATIGUE [None]
  - HALLUCINATION [None]
